FAERS Safety Report 16362004 (Version 3)
Quarter: 2020Q1

REPORT INFORMATION
  Report Type: Spontaneous
  Country: US (occurrence: US)
  Receive Date: 20190528
  Receipt Date: 20200303
  Transmission Date: 20200409
  Serious: No
  Sender: FDA-Public Use
  Company Number: US-PFIZER INC-2019226757

PATIENT
  Age: 63 Year
  Sex: Male

DRUGS (2)
  1. NORPACE CR [Suspect]
     Active Substance: DISOPYRAMIDE PHOSPHATE
     Indication: HYPERTROPHIC CARDIOMYOPATHY
     Dosage: 100 MG, UNK(IT EVERY 6 HOURS OR EVERY 8 HOURS)
  2. NORPACE CR [Suspect]
     Active Substance: DISOPYRAMIDE PHOSPHATE
     Dosage: 150 MG, UNK(IT EVERY 6 HOURS OR EVERY 8 HOURS)

REACTIONS (3)
  - Drug level fluctuating [Unknown]
  - Product use in unapproved indication [Unknown]
  - Off label use [Unknown]
